FAERS Safety Report 21681499 (Version 1)
Quarter: 2022Q4

REPORT INFORMATION
  Report Type: Spontaneous
  Country: CH (occurrence: CH)
  Receive Date: 20221205
  Receipt Date: 20221205
  Transmission Date: 20230113
  Serious: Yes (Other)
  Sender: FDA-Public Use
  Company Number: CH-GLAXOSMITHKLINE-CH2022EME178392

PATIENT

DRUGS (4)
  1. NIRAPARIB [Suspect]
     Active Substance: NIRAPARIB
     Indication: Ovarian cancer
     Dosage: 200 MG, QD
     Dates: start: 2022
  2. METFORMIN [Concomitant]
     Active Substance: METFORMIN HYDROCHLORIDE
     Indication: Diabetes mellitus
     Dosage: UNK
  3. AMLODIPINE [Concomitant]
     Active Substance: AMLODIPINE BESYLATE
     Indication: Hypertension
     Dosage: UNK
  4. CAPTOPRIL [Concomitant]
     Active Substance: CAPTOPRIL
     Indication: Hypertension
     Dosage: UNK

REACTIONS (3)
  - Renal impairment [Unknown]
  - Fatigue [Unknown]
  - Anaemia [Unknown]

NARRATIVE: CASE EVENT DATE: 20220101
